FAERS Safety Report 5338413-6 (Version None)
Quarter: 2007Q2

REPORT INFORMATION
  Report Type: 
  Country: None (occurrence: None)
  Receive Date: 20070322
  Receipt Date: 20060621
  Transmission Date: 20071010
  Serious: Yes (Other)
  Sender: FDA-Public Use
  Company Number: 200611887BCC

PATIENT
  Age: 67 Year
  Sex: Male
  Weight: 108.8633 kg

DRUGS (3)
  1. ALEVE [Suspect]
     Indication: ARTHRITIS
     Dosage: 440 MG, TOTAL DAILY, ORAL
     Route: 048
     Dates: start: 20060523
  2. AVALIDE [Concomitant]
  3. ATENOLOL [Concomitant]

REACTIONS (1)
  - BLOOD PRESSURE INCREASED [None]
